FAERS Safety Report 21422948 (Version 2)
Quarter: 2022Q4

REPORT INFORMATION
  Report Type: Spontaneous
  Country: FR (occurrence: FR)
  Receive Date: 20221007
  Receipt Date: 20221018
  Transmission Date: 20230113
  Serious: Yes (Other)
  Sender: FDA-Public Use
  Company Number: None

PATIENT
  Age: 60 Year
  Sex: Female
  Weight: 43.8 kg

DRUGS (20)
  1. PIPERACILLIN SODIUM\TAZOBACTAM SODIUM [Suspect]
     Active Substance: PIPERACILLIN SODIUM\TAZOBACTAM SODIUM
     Dosage: 4 G, 2X/DAY (EVERY 12 HOURS)
     Route: 042
     Dates: start: 20220826, end: 20220830
  2. ACYCLOVIR [Concomitant]
     Active Substance: ACYCLOVIR
     Dosage: UNK
  3. ERYTHROPOIETIN [Concomitant]
     Active Substance: ERYTHROPOIETIN
     Dosage: UNK
  4. FOLIC ACID [Concomitant]
     Active Substance: FOLIC ACID
     Dosage: UNK
  5. ATORVASTATIN [Concomitant]
     Active Substance: ATORVASTATIN
     Dosage: UNK
  6. FIDAXOMICIN [Concomitant]
     Active Substance: FIDAXOMICIN
     Indication: Clostridium difficile colitis
     Dosage: 400 MG, 1X/DAY
     Dates: start: 20220826, end: 20220831
  7. FIDAXOMICIN [Concomitant]
     Active Substance: FIDAXOMICIN
     Dosage: 200 MG, 2X/DAY
     Dates: start: 20220831
  8. PROGESTERONE [Concomitant]
     Active Substance: PROGESTERONE
     Dosage: UNK
  9. OMEPRAZOLE [Concomitant]
     Active Substance: OMEPRAZOLE
     Dosage: UNK
  10. TEGRETOL [Concomitant]
     Active Substance: CARBAMAZEPINE
     Dosage: UNK
  11. DOLIPRANE [Concomitant]
     Active Substance: ACETAMINOPHEN
     Dosage: UNK
  12. KAYEXALATE [Concomitant]
     Active Substance: SODIUM POLYSTYRENE SULFONATE
     Dosage: UNK
  13. ESTRADIOL [Concomitant]
     Active Substance: ESTRADIOL
     Dosage: UNK
  14. KINERET [Concomitant]
     Active Substance: ANAKINRA
     Dosage: UNK
  15. EPIDUO [Concomitant]
     Active Substance: ADAPALENE\BENZOYL PEROXIDE
     Dosage: UNK
  16. HYDROCORTISONE [Concomitant]
     Active Substance: HYDROCORTISONE
     Dosage: UNK
  17. CALCIUM CARBONATE [Concomitant]
     Active Substance: CALCIUM CARBONATE
     Dosage: UNK
  18. PYRIDOXINE [Concomitant]
     Active Substance: PYRIDOXINE
     Dosage: UNK
  19. VENOFER [Concomitant]
     Active Substance: IRON SUCROSE
     Dosage: UNK
  20. METHYLPREDNISOLONE SODIUM SUCCINATE [Concomitant]
     Active Substance: METHYLPREDNISOLONE SODIUM SUCCINATE
     Dosage: UNK

REACTIONS (2)
  - Mixed liver injury [Recovered/Resolved]
  - Lipase increased [Unknown]

NARRATIVE: CASE EVENT DATE: 20220829
